FAERS Safety Report 9613624 (Version 1)
Quarter: 2013Q4

REPORT INFORMATION
  Report Type: Spontaneous
  Country: US (occurrence: US)
  Receive Date: 20131010
  Receipt Date: 20131010
  Transmission Date: 20140711
  Serious: No
  Sender: FDA-Public Use
  Company Number: US-TEVA-379524USA

PATIENT
  Age: 21 Year
  Sex: Female
  Weight: 72.64 kg

DRUGS (1)
  1. SEASONALE [Suspect]
     Indication: CONTRACEPTION

REACTIONS (2)
  - Menorrhagia [Not Recovered/Not Resolved]
  - Incorrect dose administered [Unknown]
